FAERS Safety Report 13553816 (Version 2)
Quarter: 2017Q2

REPORT INFORMATION
  Report Type: Spontaneous
  Country: AU (occurrence: AU)
  Receive Date: 20170517
  Receipt Date: 20170524
  Transmission Date: 20170830
  Serious: Yes (Hospitalization, Other)
  Sender: FDA-Public Use
  Company Number: AU-DRREDDYS-USA/AUS/17/0090736

PATIENT
  Age: 29 Year
  Sex: Male

DRUGS (8)
  1. COBICISTAT [Interacting]
     Active Substance: COBICISTAT
     Indication: HIV INFECTION
     Route: 065
  2. EMTRICITABINE [Suspect]
     Active Substance: EMTRICITABINE
     Indication: HIV INFECTION
     Route: 065
  3. LITHIUM. [Suspect]
     Active Substance: LITHIUM
     Indication: PRODUCT USED FOR UNKNOWN INDICATION
     Route: 065
  4. ELVITEGRAVIR [Suspect]
     Active Substance: ELVITEGRAVIR
     Indication: HIV INFECTION
     Route: 065
  5. TENOFOVIR [Suspect]
     Active Substance: TENOFOVIR
     Indication: HIV INFECTION
     Route: 065
  6. QUETIAPINE. [Suspect]
     Active Substance: QUETIAPINE
     Indication: PRODUCT USED FOR UNKNOWN INDICATION
     Route: 065
  7. METHAMPHETAMINE [Interacting]
     Active Substance: METHAMPHETAMINE
     Indication: PRODUCT USED FOR UNKNOWN INDICATION
     Route: 042
  8. GAMMA-HYDROXYBUTYRATE [Suspect]
     Active Substance: 4-HYDROXYBUTANOIC ACID
     Indication: PRODUCT USED FOR UNKNOWN INDICATION
     Route: 048

REACTIONS (8)
  - Coma scale abnormal [Unknown]
  - Drug level increased [Unknown]
  - Drug interaction [Unknown]
  - Sedation [Recovering/Resolving]
  - Somnolence [Unknown]
  - Tachycardia [Recovering/Resolving]
  - Toxicity to various agents [Unknown]
  - Overdose [Unknown]
